FAERS Safety Report 19444013 (Version 3)
Quarter: 2022Q1

REPORT INFORMATION
  Report Type: Report from Study
  Country: US (occurrence: US)
  Receive Date: 20210621
  Receipt Date: 20220106
  Transmission Date: 20220423
  Serious: No
  Sender: FDA-Public Use
  Company Number: US-SHIONOGI, INC-2021000160

PATIENT
  Age: 44 Year
  Sex: Male
  Weight: 86.7 kg

DRUGS (4)
  1. FETROJA [Suspect]
     Active Substance: CEFIDEROCOL SULFATE TOSYLATE
     Indication: Bacterial infection
     Dosage: 2 G, QID 3 HR INFUSION
     Route: 042
     Dates: start: 20210217, end: 20210318
  2. AVIBACTAM SODIUM\CEFTAZIDIME [Concomitant]
     Active Substance: AVIBACTAM SODIUM\CEFTAZIDIME
     Indication: Bacterial infection
     Dosage: UNK
     Route: 065
     Dates: start: 20210209, end: 20210216
  3. MEROPENEM\VABORBACTAM [Concomitant]
     Active Substance: MEROPENEM\VABORBACTAM
     Indication: Bacterial infection
     Dosage: UNK
     Route: 065
     Dates: start: 20210318, end: 20210330
  4. DAPTOMYCIN [Concomitant]
     Active Substance: DAPTOMYCIN
     Indication: Bacteraemia
     Dosage: UNK
     Route: 065
     Dates: start: 20210205, end: 20210329

REACTIONS (1)
  - Rash [Recovered/Resolved]

NARRATIVE: CASE EVENT DATE: 20210318
